FAERS Safety Report 7383962-2 (Version None)
Quarter: 2011Q1

REPORT INFORMATION
  Report Type: 
  Country: None (occurrence: None)
  Receive Date: 20110330
  Receipt Date: 20110316
  Transmission Date: 20110831
  Serious: Yes (Other)
  Sender: FDA-Public Use
  Company Number: JP-WATSON-2011-03638

PATIENT
  Age: 78 Year
  Sex: Female

DRUGS (3)
  1. ALENDRONATE SODIUM [Suspect]
     Indication: OSTEOPOROSIS
     Dosage: 5 MG, DAILY
     Dates: start: 20041101, end: 20081001
  2. RALOXIFENE HCL [Suspect]
     Indication: OSTEOPOROSIS
     Dosage: 60 MG, DAILY
     Dates: start: 20081001
  3. RISEDRONIC ACID [Suspect]
     Indication: OSTEOPOROSIS
     Dosage: 2.5 MG, DAILY
     Dates: start: 20021101, end: 20041101

REACTIONS (1)
  - FEMUR FRACTURE [None]
